FAERS Safety Report 15015649 (Version 3)
Quarter: 2018Q3

REPORT INFORMATION
  Report Type: Spontaneous
  Country: GR (occurrence: GR)
  Receive Date: 20180615
  Receipt Date: 20180719
  Transmission Date: 20181010
  Serious: Yes (Death, Life-Threatening, Hospitalization)
  Sender: FDA-Public Use
  Company Number: GR-GLAXOSMITHKLINE-GR2018103691

PATIENT
  Age: 24 Year
  Sex: Male

DRUGS (13)
  1. METHYLPREDNISOLONE. [Suspect]
     Active Substance: METHYLPREDNISOLONE
     Indication: HISTIOCYTOSIS HAEMATOPHAGIC
     Dosage: UNK
     Route: 065
  2. MEROPENEM. [Suspect]
     Active Substance: MEROPENEM
     Indication: PRODUCT USED FOR UNKNOWN INDICATION
     Dosage: UNK
     Route: 065
  3. ALBUMINE [Suspect]
     Active Substance: ALBUMIN HUMAN
     Indication: HISTIOCYTOSIS HAEMATOPHAGIC
     Dosage: UNK
     Route: 065
  4. TEICOPLANIN [Suspect]
     Active Substance: TEICOPLANIN
     Indication: INFECTIOUS MONONUCLEOSIS
     Dosage: UNK
     Route: 065
  5. ACICLOVIR [Suspect]
     Active Substance: ACYCLOVIR
     Indication: INFECTIOUS MONONUCLEOSIS
     Dosage: UNK
     Route: 065
  6. METRONIDAZOLE. [Suspect]
     Active Substance: METRONIDAZOLE
     Indication: INFECTIOUS MONONUCLEOSIS
     Dosage: UNK
     Route: 065
  7. METHYLPREDNISOLONE. [Suspect]
     Active Substance: METHYLPREDNISOLONE
     Indication: INFECTIOUS MONONUCLEOSIS
     Dosage: 2 MG/KG
     Route: 065
  8. DEXAMETHASONE. [Suspect]
     Active Substance: DEXAMETHASONE
     Indication: HISTIOCYTOSIS HAEMATOPHAGIC
     Dosage: UNK
     Route: 041
  9. DEXAMETHASONE. [Suspect]
     Active Substance: DEXAMETHASONE
     Indication: INFECTIOUS MONONUCLEOSIS
  10. GANCICLOVIR. [Suspect]
     Active Substance: GANCICLOVIR
     Indication: INFECTIOUS MONONUCLEOSIS
     Dosage: UNK
     Route: 065
  11. ETOPOSIDE. [Suspect]
     Active Substance: ETOPOSIDE
     Indication: INFECTIOUS MONONUCLEOSIS
     Dosage: UNK
     Route: 065
  12. RIFAXIMIN. [Suspect]
     Active Substance: RIFAXIMIN
     Indication: INFECTIOUS MONONUCLEOSIS
     Dosage: UNK
     Route: 065
  13. ALBUMINE [Suspect]
     Active Substance: ALBUMIN HUMAN
     Indication: INFECTIOUS MONONUCLEOSIS

REACTIONS (1)
  - Drug ineffective [Fatal]
